FAERS Safety Report 9976285 (Version 1)
Quarter: 2014Q1

REPORT INFORMATION
  Report Type: Report from Study
  Country: US (occurrence: US)
  Receive Date: 20140306
  Receipt Date: 20140306
  Transmission Date: 20141002
  Serious: No
  Sender: FDA-Public Use
  Company Number: US-ABBVIE-13P-163-1163593-00

PATIENT
  Age: 61 Year
  Sex: Female
  Weight: 98.97 kg

DRUGS (8)
  1. HUMIRA [Suspect]
     Indication: PSORIATIC ARTHROPATHY
     Route: 058
     Dates: start: 201307
  2. CLARITIN [Concomitant]
     Indication: SEASONAL ALLERGY
  3. FOLIC ACID [Concomitant]
     Indication: FOLATE DEFICIENCY
  4. SAVELLA [Concomitant]
     Indication: DRUG EFFECT INCREASED
  5. LISINOPRIL [Concomitant]
     Indication: HYPERTENSION
  6. PREDNISONE [Concomitant]
     Indication: PSORIATIC ARTHROPATHY
     Dosage: ALERNATING DAYS WITH MELOXICAM
  7. MELOXICAM [Concomitant]
     Indication: PSORIATIC ARTHROPATHY
     Dosage: ALTENATING DAYS WITH PREDNISONE
  8. METHOTREXATE [Concomitant]
     Indication: PSORIATIC ARTHROPATHY

REACTIONS (2)
  - Injection site erythema [Not Recovered/Not Resolved]
  - Injection site pruritus [Not Recovered/Not Resolved]
